FAERS Safety Report 9295313 (Version 1)
Quarter: 2013Q1

REPORT INFORMATION
  Report Type: Spontaneous
  Country: US (occurrence: None)
  Receive Date: 20121227
  Receipt Date: 20121227
  Transmission Date: 20140127
  Serious: No
  Sender: FDA-Public Use
  Company Number: PHEH2012US021973

PATIENT
  Age: 75 Year
  Sex: Female

DRUGS (7)
  1. AFINITOR [Suspect]
     Route: 048
  2. LEVOTHYROXINE (LEVOTHYROXINE) [Suspect]
  3. HYDROCHLOROTHIAZIDE (HYDROCHLOROTHIAZIDE) [Suspect]
  4. HYDROCODONE (HYDROCODONE) [Concomitant]
  5. POTASSIUM (POTASSIUM) [Concomitant]
  6. SUPER B COMPLEX (ASCORBIC ACID, BIOTIN, CALCIUM PANTOTHENATE, CHOLINE BITARTRATE, CYANOCOBALAMIN, FOLIC ACID, INOSITOL, NICOTINAMIDE, PYRIDOXINE HYDROXINE HYDROCHLORIDE, RIBOFLAVIN, THIAMINE MONONITRATE) [Concomitant]
  7. GABAPENTIN (GABAPENTIN) [Concomitant]

REACTIONS (3)
  - Feeling abnormal [None]
  - Asthenia [None]
  - Dizziness [None]
